FAERS Safety Report 16913402 (Version 3)
Quarter: 2019Q4

REPORT INFORMATION
  Report Type: Spontaneous
  Country: US (occurrence: US)
  Receive Date: 20191014
  Receipt Date: 20191127
  Transmission Date: 20200122
  Serious: No
  Sender: FDA-Public Use
  Company Number: US-ASTRAZENECA-2019SF43464

PATIENT
  Sex: Male
  Weight: 85.7 kg

DRUGS (11)
  1. BYDUREON [Suspect]
     Active Substance: EXENATIDE
     Indication: TYPE 2 DIABETES MELLITUS
     Route: 058
     Dates: start: 201908
  2. EFFIENT [Concomitant]
     Active Substance: PRASUGREL HYDROCHLORIDE
  3. DEXILANT [Concomitant]
     Active Substance: DEXLANSOPRAZOLE
  4. AMLODIPINE [Concomitant]
     Active Substance: AMLODIPINE BESYLATE
  5. METFORMIN [Concomitant]
     Active Substance: METFORMIN HYDROCHLORIDE
  6. BYDUREON BCISE [Suspect]
     Active Substance: EXENATIDE
     Route: 065
  7. ATORVASTATIN [Concomitant]
     Active Substance: ATORVASTATIN
  8. MVI [Concomitant]
     Active Substance: VITAMINS
  9. PEPCID [Concomitant]
     Active Substance: FAMOTIDINE
  10. VITAMIN D [Concomitant]
     Active Substance: VITAMIN D NOS
     Dosage: 4000
  11. ASPIRIN. [Concomitant]
     Active Substance: ASPIRIN

REACTIONS (4)
  - Erythema [Unknown]
  - Tenderness [Unknown]
  - Diarrhoea [Unknown]
  - Injection site nodule [Unknown]
